FAERS Safety Report 5300434-7 (Version None)
Quarter: 2007Q2

REPORT INFORMATION
  Report Type: 
  Country: None (occurrence: None)
  Receive Date: 20070413
  Receipt Date: 20070413
  Transmission Date: 20071010
  Serious: Yes (Hospitalization)
  Sender: FDA-Public Use
  Company Number: None

PATIENT
  Sex: Male
  Weight: 122 kg

DRUGS (8)
  1. PERCOCET-5 [Suspect]
     Indication: HEADACHE
     Dosage: 1 TAB Q4 PRN (PO)
     Route: 048
  2. FENTANYL TRANSDERMAL SYSTEM [Suspect]
     Indication: PAIN
  3. LORAZEPAM [Concomitant]
  4. ASPIRIN [Concomitant]
  5. FUROSEMIDE [Concomitant]
  6. HEPARIN [Concomitant]
  7. ZOSYN [Concomitant]
  8. SIMVASTATIN [Concomitant]

REACTIONS (3)
  - APNOEIC ATTACK [None]
  - LOSS OF CONSCIOUSNESS [None]
  - MUSCLE SPASMS [None]
